FAERS Safety Report 9879857 (Version 3)
Quarter: 2014Q4

REPORT INFORMATION
  Report Type: Spontaneous
  Country: CH (occurrence: CH)
  Receive Date: 20140206
  Receipt Date: 20141124
  Transmission Date: 20150529
  Serious: Yes (Other)
  Sender: FDA-Public Use
  Company Number: CH-ABBVIE-14P-151-1197611-00

PATIENT
  Age: 32 Year
  Sex: Female
  Weight: 55 kg

DRUGS (2)
  1. METHOTREXATE [Concomitant]
     Active Substance: METHOTREXATE
     Indication: ARTHRITIS
     Dates: start: 20060124, end: 2011
  2. HUMIRA [Suspect]
     Active Substance: ADALIMUMAB
     Indication: RHEUMATOID ARTHRITIS
     Route: 065
     Dates: start: 20060704, end: 20131126

REACTIONS (7)
  - Rheumatoid arthritis [Unknown]
  - Serositis [Unknown]
  - Ascites [Recovered/Resolved]
  - Pleural effusion [Recovered/Resolved]
  - Sialoadenitis [Unknown]
  - Lupus-like syndrome [Unknown]
  - Abscess of salivary gland [Unknown]

NARRATIVE: CASE EVENT DATE: 201312
